FAERS Safety Report 10667180 (Version 1)
Quarter: 2014Q4

REPORT INFORMATION
  Report Type: Report from Study
  Country: JP (occurrence: JP)
  Receive Date: 20141222
  Receipt Date: 20141222
  Transmission Date: 20150529
  Serious: Yes (Disabling)
  Sender: FDA-Public Use
  Company Number: JP-JNJFOC-20141208506

PATIENT
  Age: 74 Year
  Sex: Male
  Weight: 51 kg

DRUGS (8)
  1. BERIZYM [Concomitant]
     Active Substance: CELLULASE\DIASTASE\LIPASE
     Route: 048
  2. LUPRAC [Concomitant]
     Active Substance: TORSEMIDE
     Route: 048
  3. DIART [Concomitant]
     Active Substance: AZOSEMIDE
     Route: 048
     Dates: start: 20140411, end: 20140620
  4. ZYLORIC [Concomitant]
     Active Substance: ALLOPURINOL
     Route: 048
  5. LASIX [Concomitant]
     Active Substance: FUROSEMIDE
     Route: 048
  6. XARELTO [Suspect]
     Active Substance: RIVAROXABAN
     Indication: THROMBOSIS PROPHYLAXIS
     Route: 048
     Dates: start: 20130708, end: 20140611
  7. XARELTO [Suspect]
     Active Substance: RIVAROXABAN
     Indication: CEREBROVASCULAR ACCIDENT PROPHYLAXIS
     Route: 048
     Dates: start: 20130708, end: 20140611
  8. MAINTATE [Concomitant]
     Active Substance: BISOPROLOL FUMARATE
     Route: 048

REACTIONS (1)
  - Renal impairment [Not Recovered/Not Resolved]

NARRATIVE: CASE EVENT DATE: 20140611
